FAERS Safety Report 11729831 (Version 1)
Quarter: 2015Q4

REPORT INFORMATION
  Report Type: Spontaneous
  Country: US (occurrence: US)
  Receive Date: 20151112
  Receipt Date: 20151112
  Transmission Date: 20160304
  Serious: No
  Sender: FDA-Public Use
  Company Number: ALCN2015US007025

PATIENT
  Age: 27 Year
  Sex: Female

DRUGS (1)
  1. SYSTANE BALANCE [Suspect]
     Active Substance: PROPYLENE GLYCOL
     Indication: DRY EYE
     Dosage: 1 GTT, QD
     Route: 047
     Dates: start: 201510, end: 20151108

REACTIONS (2)
  - Eye irritation [Recovered/Resolved]
  - Eyelid irritation [Recovered/Resolved]
